FAERS Safety Report 16068414 (Version 3)
Quarter: 2019Q2

REPORT INFORMATION
  Report Type: Report from Study
  Country: US (occurrence: US)
  Receive Date: 20190313
  Receipt Date: 20190626
  Transmission Date: 20190711
  Serious: Yes (Death, Hospitalization, Other)
  Sender: FDA-Public Use
  Company Number: US-ACTELION-A-NJ2019-186107

PATIENT
  Age: 70 Year
  Sex: Female
  Weight: 81.63 kg

DRUGS (23)
  1. POTASSIUM CHLORIDE. [Concomitant]
     Active Substance: POTASSIUM CHLORIDE
  2. TORSEMIDE. [Concomitant]
     Active Substance: TORSEMIDE
  3. FUROSEMIDE. [Concomitant]
     Active Substance: FUROSEMIDE
  4. UPTRAVI [Suspect]
     Active Substance: SELEXIPAG
     Indication: PULMONARY ARTERIAL HYPERTENSION
     Dosage: 600 MCG, BID
     Route: 048
  5. LANTUS [Concomitant]
     Active Substance: INSULIN GLARGINE
  6. LEVOTHYROXIN [Concomitant]
     Active Substance: LEVOTHYROXINE
  7. UPTRAVI [Suspect]
     Active Substance: SELEXIPAG
     Dosage: 800 MCG, BID
     Route: 048
  8. ADEMPAS [Concomitant]
     Active Substance: RIOCIGUAT
     Dosage: 1 MG, TID
     Dates: start: 201902
  9. INCRUSE ELLIPTA [Concomitant]
     Active Substance: UMECLIDINIUM BROMIDE
     Route: 055
  10. HUMALOG [Concomitant]
     Active Substance: INSULIN LISPRO
  11. LOSARTAN. [Concomitant]
     Active Substance: LOSARTAN
  12. TRAZODONE [Concomitant]
     Active Substance: TRAZODONE HYDROCHLORIDE
  13. UPTRAVI [Suspect]
     Active Substance: SELEXIPAG
     Dosage: 400 MCG, BID
     Route: 048
  14. CEFUROXIME. [Concomitant]
     Active Substance: CEFUROXIME
  15. ATORVASTATIN [Concomitant]
     Active Substance: ATORVASTATIN
  16. JANUVIA [Concomitant]
     Active Substance: SITAGLIPTIN PHOSPHATE
  17. SPIRONOLACTONE. [Concomitant]
     Active Substance: SPIRONOLACTONE
  18. AMLODIPINE [Concomitant]
     Active Substance: AMLODIPINE BESYLATE
  19. BREO ELLIPTA [Concomitant]
     Active Substance: FLUTICASONE FUROATE\VILANTEROL TRIFENATATE
  20. CONTOUR [Concomitant]
  21. OPSUMIT [Suspect]
     Active Substance: MACITENTAN
     Indication: PULMONARY ARTERIAL HYPERTENSION
     Dosage: 10 MG, QD
     Route: 048
     Dates: start: 20190125, end: 20190606
  22. DIGOX [Concomitant]
     Active Substance: DIGOXIN
  23. ESCITALOPRAM [Concomitant]
     Active Substance: ESCITALOPRAM OXALATE

REACTIONS (14)
  - Death [Fatal]
  - Fluid retention [Unknown]
  - Decreased appetite [Unknown]
  - Urinary retention [Unknown]
  - Right ventricular failure [Unknown]
  - Abdominal distension [Unknown]
  - Dyspnoea [Recovered/Resolved]
  - Oedema peripheral [Unknown]
  - Incontinence [Unknown]
  - Nasal congestion [Not Recovered/Not Resolved]
  - Hepatic fibrosis [Unknown]
  - Pulmonary arterial hypertension [Recovered/Resolved]
  - Treatment noncompliance [Unknown]
  - Headache [Unknown]

NARRATIVE: CASE EVENT DATE: 20190208
